FAERS Safety Report 6998012-7 (Version None)
Quarter: 2010Q3

REPORT INFORMATION
  Report Type: 
  Country: None (occurrence: None)
  Receive Date: 20100920
  Receipt Date: 20070322
  Transmission Date: 20110219
  Serious: No
  Sender: FDA-Public Use
  Company Number: US-ASTRAZENECA-2006UW11486

PATIENT
  Age: 56 Year
  Sex: Female
  Weight: 93 kg

DRUGS (11)
  1. SEROQUEL [Suspect]
     Indication: SLEEP DISORDER
     Dosage: 200 MG
     Route: 048
     Dates: start: 20000101, end: 20040101
  2. SEROQUEL [Suspect]
     Dosage: 100MG-300MG
     Route: 048
     Dates: start: 20000820
  3. NORVASC [Concomitant]
     Dosage: 2.5MG-5MG DAILY
     Dates: start: 20020104
  4. MIRALAX [Concomitant]
     Indication: IRRITABLE BOWEL SYNDROME
     Dosage: 70 GRAMS WITH WATER AND JUICE AS NEEDED
     Dates: start: 20030423
  5. IMITREX [Concomitant]
     Indication: MIGRAINE
     Dosage: 25MG AS NEEDED
  6. LIPITOR [Concomitant]
     Indication: BLOOD CHOLESTEROL INCREASED
  7. DEPAKOTE [Concomitant]
     Dates: start: 20010322
  8. TOPAMAX [Concomitant]
     Dates: start: 20030423
  9. PREVACID [Concomitant]
     Dates: start: 20020604
  10. DITROPAN XL [Concomitant]
     Dates: start: 20030423
  11. AVAPRO [Concomitant]
     Dates: start: 20030423

REACTIONS (5)
  - BLOOD CHOLESTEROL INCREASED [None]
  - DIABETES MELLITUS [None]
  - RENAL DISORDER [None]
  - TYPE 2 DIABETES MELLITUS [None]
  - URINARY TRACT INFECTION [None]
